FAERS Safety Report 11128331 (Version 1)
Quarter: 2015Q2

REPORT INFORMATION
  Report Type: Spontaneous
  Country: US (occurrence: None)
  Receive Date: 20150520
  Receipt Date: 20150520
  Transmission Date: 20150821
  Serious: Yes (Other)
  Sender: FDA-Public Use
  Company Number: None

PATIENT
  Age: 41 Year
  Sex: Female
  Weight: 65.77 kg

DRUGS (7)
  1. MULTI-VITAMINS [Concomitant]
  2. PROBIOTIC [Concomitant]
     Active Substance: PROBIOTICS NOS
  3. KENALOG [Suspect]
     Active Substance: TRIAMCINOLONE ACETONIDE
     Indication: NASOPHARYNGITIS
     Dosage: 1 INJECTION - 40 MG, GIVEN INTO/UNDER THE SKIN
     Dates: start: 20140926, end: 20140926
  4. ZYRTEC [Concomitant]
     Active Substance: CETIRIZINE HYDROCHLORIDE
  5. PROLIA [Concomitant]
     Active Substance: DENOSUMAB
  6. KENALOG [Suspect]
     Active Substance: TRIAMCINOLONE ACETONIDE
     Indication: SINUSITIS
     Dosage: 1 INJECTION - 40 MG, GIVEN INTO/UNDER THE SKIN
     Dates: start: 20140926, end: 20140926
  7. WELLBUTRIN [Concomitant]
     Active Substance: BUPROPION HYDROCHLORIDE

REACTIONS (10)
  - Bone pain [None]
  - Pollakiuria [None]
  - Headache [None]
  - Insomnia [None]
  - Polymenorrhoea [None]
  - Myalgia [None]
  - Abdominal discomfort [None]
  - Injection site atrophy [None]
  - Cough [None]
  - Deformity [None]

NARRATIVE: CASE EVENT DATE: 20140926
